FAERS Safety Report 4560061-6 (Version None)
Quarter: 2005Q1

REPORT INFORMATION
  Report Type: 
  Country: None (occurrence: None)
  Receive Date: 20050120
  Receipt Date: 20050120
  Transmission Date: 20050727
  Serious: Yes (Hospitalization)
  Sender: FDA-Public Use
  Company Number: None

PATIENT
  Age: 48 Year
  Sex: Male
  Weight: 105.1 kg

DRUGS (8)
  1. TOPOTECAN, GLAXO SMITH KLINE [Suspect]
     Dosage: 1.0 MG/M2 QD X 5 DAYS
     Dates: start: 20040922
  2. TEMODAR [Suspect]
     Dosage: 150MG/M2 QD X 5 DAYS
     Dates: start: 20040922
  3. DECADRON [Concomitant]
  4. DEPAKOTE [Concomitant]
  5. RISPERDAL [Concomitant]
  6. LEXAPRO [Concomitant]
  7. PEPCID [Concomitant]
  8. COUMADIN [Concomitant]

REACTIONS (5)
  - DIZZINESS [None]
  - FALL [None]
  - HYPOKALAEMIA [None]
  - SECONDARY ADRENOCORTICAL INSUFFICIENCY [None]
  - SYNCOPE [None]
